FAERS Safety Report 4399798-0 (Version None)
Quarter: 2004Q3

REPORT INFORMATION
  Report Type: 
  Country: None (occurrence: None)
  Receive Date: 20040714
  Receipt Date: 20040701
  Transmission Date: 20050211
  Serious: Yes (Other)
  Sender: FDA-Public Use
  Company Number: 2004045187

PATIENT
  Age: 48 Year
  Sex: Female

DRUGS (3)
  1. DILANTIN [Suspect]
     Indication: EPILEPSY
     Dosage: 250 MG
  2. CARBMAZEPINE (CARBAMAZEPINE) [Concomitant]
  3. OMEPRAZOLE [Concomitant]

REACTIONS (2)
  - BLOOD SODIUM DECREASED [None]
  - LYMPHADENOPATHY [None]
